FAERS Safety Report 9859759 (Version 1)
Quarter: 2014Q1

REPORT INFORMATION
  Report Type: Spontaneous
  Country: US (occurrence: US)
  Receive Date: 20140131
  Receipt Date: 20140131
  Transmission Date: 20141002
  Serious: Yes (Other)
  Sender: FDA-Public Use
  Company Number: US-BRISTOL-MYERS SQUIBB COMPANY-20110300

PATIENT
  Sex: 0

DRUGS (2)
  1. BYETTA [Suspect]
     Dosage: UNTIL OCT-2009.
     Dates: start: 2005
  2. JANUVIA [Suspect]
     Dosage: UNTIL OCT-2009
     Dates: start: 200911

REACTIONS (1)
  - Pancreatic carcinoma [Unknown]
